FAERS Safety Report 23433455 (Version 1)
Quarter: 2024Q1

REPORT INFORMATION
  Report Type: Spontaneous
  Country: US (occurrence: None)
  Receive Date: 20240123
  Receipt Date: 20240123
  Transmission Date: 20240410
  Serious: Yes (Other)
  Sender: FDA-Public Use
  Company Number: 2024A016160

PATIENT
  Sex: Male

DRUGS (4)
  1. OLAPARIB [Suspect]
     Active Substance: OLAPARIB
     Route: 048
  2. TALAZOPARIB [Concomitant]
     Active Substance: TALAZOPARIB
  3. TAXOTERE [Concomitant]
     Active Substance: DOCETAXEL
  4. XTANDI [Concomitant]
     Active Substance: ENZALUTAMIDE

REACTIONS (4)
  - Neoplasm malignant [Unknown]
  - Prostatic specific antigen increased [Unknown]
  - Blood testosterone increased [Unknown]
  - Fatigue [Unknown]
